FAERS Safety Report 19501512 (Version 1)
Quarter: 2021Q3

REPORT INFORMATION
  Report Type: Spontaneous
  Country: DE (occurrence: DE)
  Receive Date: 20210707
  Receipt Date: 20210707
  Transmission Date: 20211014
  Serious: Yes (Hospitalization, Other)
  Sender: FDA-Public Use
  Company Number: DE-TEVA-2021-DE-1929447

PATIENT
  Age: 64 Year
  Sex: Male

DRUGS (13)
  1. AMLODIPIN [Concomitant]
     Active Substance: AMLODIPINE BESYLATE
     Dosage: 5 MILLIGRAM DAILY; 1?0?0?0
     Route: 048
  2. CANDESARTAN. [Concomitant]
     Active Substance: CANDESARTAN
     Dosage: 32 MILLIGRAM DAILY; 1?0?1?0
     Route: 048
  3. AMLODIPIN [Concomitant]
     Active Substance: AMLODIPINE BESYLATE
     Dosage: 1 DOSAGE FORMS DAILY; 1?0?0?0
     Route: 048
  4. PREGABALIN. [Concomitant]
     Active Substance: PREGABALIN
     Dosage: 50 MG, IF NECESSARY, CAPSULES
     Route: 048
  5. METOPROLOL. [Concomitant]
     Active Substance: METOPROLOL
     Dosage: 47.5 MILLIGRAM DAILY; 1?0?0?0
     Route: 048
  6. PANTOPRAZOL [Concomitant]
     Active Substance: PANTOPRAZOLE SODIUM
     Dosage: 80 MILLIGRAM DAILY; 1?0?1?0
     Route: 048
  7. LORAZEPAM. [Concomitant]
     Active Substance: LORAZEPAM
     Dosage: 1 MG, IF NECESSARY, ORODISPERSIBLE TABLETS
     Route: 048
  8. DICLOFENAC [Suspect]
     Active Substance: DICLOFENAC
     Dosage: 75 MG, IF NECESSARY, CAPSULES
     Route: 048
  9. ACETYLSALICYLSAURE [Concomitant]
     Active Substance: ASPIRIN
     Dosage: 100 MILLIGRAM DAILY;  0?1?0?0,
     Route: 048
  10. FLOHSAMEN [Concomitant]
     Dosage: IF NECESSARY, POWDER
     Route: 048
  11. LEVOFLOXACIN. [Suspect]
     Active Substance: LEVOFLOXACIN
     Dosage: 500 MILLIGRAM DAILY; 1?0?1?0
     Route: 048
     Dates: start: 20210416
  12. SERTRALIN [Suspect]
     Active Substance: SERTRALINE HYDROCHLORIDE
     Dosage: 50 MILLIGRAM DAILY; 1?0?0?0
     Route: 048
  13. FENTANYL. [Concomitant]
     Active Substance: FENTANYL
     Dosage: 11.56 MG, CHANGE EVERY 3 DAYS:UNIT DOSE:1DOSAGEFORM
     Route: 062

REACTIONS (2)
  - Haematochezia [Unknown]
  - Upper gastrointestinal haemorrhage [Unknown]

NARRATIVE: CASE EVENT DATE: 20210417
